FAERS Safety Report 15285844 (Version 1)
Quarter: 2018Q3

REPORT INFORMATION
  Report Type: Spontaneous
  Country: DK (occurrence: DK)
  Receive Date: 20180816
  Receipt Date: 20180816
  Transmission Date: 20181010
  Serious: Yes (Hospitalization)
  Sender: FDA-Public Use
  Company Number: DK-BAXTER-2018BAX021423

PATIENT
  Age: 40 Year
  Sex: Female

DRUGS (3)
  1. SENDOXAN [Suspect]
     Active Substance: CYCLOPHOSPHAMIDE
     Indication: INVASIVE DUCTAL BREAST CARCINOMA
     Route: 065
     Dates: start: 20171207
  2. EPIRUBICIN TEVA [Suspect]
     Active Substance: EPIRUBICIN
     Indication: INVASIVE DUCTAL BREAST CARCINOMA
     Dosage: POTENCY: 2 MG/ML,
     Route: 065
     Dates: start: 20171207
  3. EMPERAL [Concomitant]
     Active Substance: METOCLOPRAMIDE HYDROCHLORIDE
     Indication: NAUSEA
     Route: 048
     Dates: start: 20171207

REACTIONS (11)
  - Restlessness [Recovered/Resolved]
  - Extrapyramidal disorder [Recovered/Resolved]
  - Hyponatraemia [Recovered/Resolved]
  - Back pain [Not Recovered/Not Resolved]
  - Tremor [Recovered/Resolved]
  - Muscular weakness [Recovered/Resolved]
  - Cardiac arrest [Recovered/Resolved]
  - Seizure [Recovered/Resolved]
  - Musculoskeletal chest pain [Not Recovered/Not Resolved]
  - Spinal fracture [Unknown]
  - Coordination abnormal [Recovered/Resolved]

NARRATIVE: CASE EVENT DATE: 201712
